FAERS Safety Report 4687719-2 (Version None)
Quarter: 2005Q2

REPORT INFORMATION
  Report Type: 
  Country: None (occurrence: None)
  Receive Date: 20050608
  Receipt Date: 20050608
  Transmission Date: 20051028
  Serious: Yes (Life-Threatening, Hospitalization)
  Sender: FDA-Public Use
  Company Number: None

PATIENT
  Age: 78 Year
  Sex: Female
  Weight: 65.7262 kg

DRUGS (6)
  1. HYDROCHLOROTHIAZIDE [Suspect]
     Indication: HYPERTENSION
     Dosage: 20 MG
  2. LISINOPRIL [Suspect]
     Indication: HYPERTENSION
     Dosage: 25MG
  3. NORVASC [Concomitant]
  4. CLONIDINE [Concomitant]
  5. COREG [Concomitant]
  6. ASPIRIN [Concomitant]

REACTIONS (5)
  - DISORIENTATION [None]
  - DYSKINESIA [None]
  - LETHARGY [None]
  - MENTAL STATUS CHANGES [None]
  - TREATMENT NONCOMPLIANCE [None]
